FAERS Safety Report 8264761 (Version 5)
Quarter: 2013Q3

REPORT INFORMATION
  Report Type: Spontaneous
  Country: US (occurrence: US)
  Receive Date: 20111128
  Receipt Date: 20130711
  Transmission Date: 20140515
  Serious: Yes (Death, Hospitalization)
  Sender: FDA-Public Use
  Company Number: US-GLAXOSMITHKLINE-B0764737A

PATIENT
  Age: 62 Year
  Sex: Male
  Weight: 109.5 kg

DRUGS (2)
  1. AVANDIA [Suspect]
     Indication: DIABETES MELLITUS
     Dosage: 2MG TWICE PER DAY
     Route: 048
     Dates: start: 20030115, end: 20061106
  2. AVANDAMET [Suspect]
     Indication: DIABETES MELLITUS
     Route: 048
     Dates: start: 20061207, end: 20091027

REACTIONS (5)
  - Cardiac arrest [Fatal]
  - Cerebrovascular accident [Unknown]
  - Transient ischaemic attack [Unknown]
  - Cardiac failure [Unknown]
  - Dizziness [Unknown]
